APPROVED DRUG PRODUCT: MIRTAZAPINE
Active Ingredient: MIRTAZAPINE
Strength: 15MG
Dosage Form/Route: TABLET;ORAL
Application: A216751 | Product #002 | TE Code: AB
Applicant: PRASCO LLC DBA PRASCO LABORATORIES
Approved: Jan 18, 2023 | RLD: No | RS: No | Type: RX